FAERS Safety Report 12487543 (Version 1)
Quarter: 2016Q2

REPORT INFORMATION
  Report Type: Spontaneous
  Country: US (occurrence: None)
  Receive Date: 20160621
  Receipt Date: 20160621
  Transmission Date: 20160815
  Serious: No
  Sender: FDA-Public Use
  Company Number: None

PATIENT
  Age: 37 Year
  Sex: Male
  Weight: 87.1 kg

DRUGS (10)
  1. HYDROMORPHONE [Concomitant]
     Active Substance: HYDROMORPHONE
  2. MIRALAX [Concomitant]
     Active Substance: POLYETHYLENE GLYCOL 3350
  3. HALOPERIDOL. [Concomitant]
     Active Substance: HALOPERIDOL
  4. OXYCODONE [Concomitant]
     Active Substance: OXYCODONE
  5. ONDANSETRON [Concomitant]
     Active Substance: ONDANSETRON
  6. ENOXAPARIN [Concomitant]
     Active Substance: ENOXAPARIN
  7. VORICONAZOLE. [Suspect]
     Active Substance: VORICONAZOLE
     Indication: ASPERGILLUS INFECTION
     Route: 048
  8. IBUPROFEN. [Concomitant]
     Active Substance: IBUPROFEN
  9. ACETAMINOPHEN. [Concomitant]
     Active Substance: ACETAMINOPHEN
  10. NALBUPHINE [Concomitant]
     Active Substance: NALBUPHINE

REACTIONS (8)
  - Unresponsive to stimuli [None]
  - Hallucination [None]
  - Confusional state [None]
  - Agitation [None]
  - Muscle twitching [None]
  - Seizure [None]
  - Eye movement disorder [None]
  - Poor quality sleep [None]

NARRATIVE: CASE EVENT DATE: 20160606
